FAERS Safety Report 12698639 (Version 1)
Quarter: 2016Q3

REPORT INFORMATION
  Report Type: Spontaneous
  Country: US (occurrence: US)
  Receive Date: 20160830
  Receipt Date: 20160830
  Transmission Date: 20161109
  Serious: No
  Sender: FDA-Public Use
  Company Number: US-GLAXOSMITHKLINE-CHPA2016US002073

PATIENT
  Age: 29 Year
  Sex: Female

DRUGS (2)
  1. EXCEDRIN MIGRAINE [Suspect]
     Active Substance: ACETAMINOPHEN\ASPIRIN\CAFFEINE
     Dosage: 6 DF, UNK
     Route: 048
     Dates: start: 20160207, end: 20160207
  2. EXCEDRIN PM [Suspect]
     Active Substance: ACETAMINOPHEN\DIPHENHYDRAMINE\DIPHENHYDRAMINE CITRATE
     Indication: MIGRAINE
     Dosage: 2 DF, QD
     Route: 048
     Dates: start: 20160207

REACTIONS (4)
  - Product use issue [None]
  - Product use issue [Unknown]
  - Therapeutic response unexpected [Unknown]
  - Incorrect dose administered [Recovered/Resolved]
